FAERS Safety Report 9798810 (Version 2)
Quarter: 2014Q1

REPORT INFORMATION
  Report Type: Spontaneous
  Country: FR (occurrence: None)
  Receive Date: 20131230
  Receipt Date: 20140305
  Transmission Date: 20141002
  Serious: Yes (Other)
  Sender: FDA-Public Use
  Company Number: AXC-2013-000683

PATIENT
  Age: 55 Year
  Sex: Female
  Weight: 52 kg

DRUGS (3)
  1. PYLERA [Suspect]
     Indication: HELICOBACTER GASTRITIS
     Route: 048
     Dates: start: 20131116, end: 20131120
  2. OMEPRAZOLE (OMEPRAZOLE) [Concomitant]
  3. LOCERYL (AMOROLFINE HYDROCHLORIDE) [Concomitant]

REACTIONS (7)
  - Presyncope [None]
  - Vertigo [None]
  - Somnolence [None]
  - Nausea [None]
  - Headache [None]
  - Asthenia [None]
  - Gait disturbance [None]
